FAERS Safety Report 18943320 (Version 2)
Quarter: 2021Q1

REPORT INFORMATION
  Report Type: Spontaneous
  Country: US (occurrence: US)
  Receive Date: 20210226
  Receipt Date: 20210227
  Transmission Date: 20210420
  Serious: Yes (Other)
  Sender: FDA-Public Use
  Company Number: US-SUN PHARMACEUTICAL INDUSTRIES LTD-2021R1-281648

PATIENT
  Age: 57 Year
  Sex: Female

DRUGS (2)
  1. LETROZOLE. [Suspect]
     Active Substance: LETROZOLE
     Indication: NEOPLASM
     Dosage: 2.5 MILLIGRAM, DAILY
     Route: 048
  2. TEMSIROLIMUS. [Suspect]
     Active Substance: TEMSIROLIMUS
     Indication: NEOPLASM
     Dosage: UNK
     Route: 065

REACTIONS (1)
  - Disease progression [Unknown]
